FAERS Safety Report 16979396 (Version 2)
Quarter: 2019Q4

REPORT INFORMATION
  Report Type: Spontaneous
  Country: US (occurrence: US)
  Receive Date: 20191031
  Receipt Date: 20191213
  Transmission Date: 20200122
  Serious: Yes (Other)
  Sender: FDA-Public Use
  Company Number: US-AMGEN-USASP2019169846

PATIENT

DRUGS (1)
  1. CINACALCET HCL [Suspect]
     Active Substance: CINACALCET HYDROCHLORIDE
     Indication: HYPERPARATHYROIDISM TERTIARY
     Dosage: UNK
     Route: 065

REACTIONS (10)
  - Complications of transplanted kidney [Unknown]
  - Bone pain [Unknown]
  - Hyperparathyroidism [Unknown]
  - Osteoporosis [Unknown]
  - Hypercalcaemia [Unknown]
  - Post procedural hypoparathyroidism [Unknown]
  - Paralysis recurrent laryngeal nerve [Unknown]
  - End stage renal disease [Unknown]
  - Renal transplant failure [Unknown]
  - Drug ineffective for unapproved indication [Unknown]
